FAERS Safety Report 10208044 (Version 1)
Quarter: 2014Q2

REPORT INFORMATION
  Report Type: Spontaneous
  Country: GB (occurrence: None)
  Receive Date: 20140527
  Receipt Date: 20140527
  Transmission Date: 20141212
  Serious: Yes (Disabling)
  Sender: FDA-Public Use
  Company Number: AUR-APL-2014-05996

PATIENT
  Age: 64 Year
  Sex: Male
  Weight: 63 kg

DRUGS (15)
  1. CITALOPRAM [Suspect]
     Indication: DEPRESSION
     Route: 048
     Dates: end: 20131227
  2. ASPIRIN (ACETYLSALICYLIC ACID) [Concomitant]
  3. CARBOCISTEINE [Concomitant]
  4. CLOPIDOGREL [Concomitant]
  5. DIAZEPAM [Concomitant]
  6. IBUPROFEN [Concomitant]
  7. IPRATROPIUM [Concomitant]
  8. LANSOPRAZOLE [Concomitant]
  9. MELATONIN [Concomitant]
  10. PARACETAMOL [Concomitant]
  11. PREDNISOLONE [Concomitant]
  12. RAMIPRIL [Concomitant]
  13. SALBUTAMOL [Concomitant]
  14. THEOPHYLLINE [Concomitant]
  15. ZOPICLONE [Concomitant]

REACTIONS (4)
  - Extrapyramidal disorder [None]
  - Muscle rigidity [None]
  - Anxiety [None]
  - Parkinson^s disease [None]
